FAERS Safety Report 8215336-6 (Version None)
Quarter: 2012Q1

REPORT INFORMATION
  Report Type: 
  Country: None (occurrence: None)
  Receive Date: 20120316
  Receipt Date: 20120314
  Transmission Date: 20120608
  Serious: Yes (Hospitalization, Other)
  Sender: FDA-Public Use
  Company Number: US-PFIZER INC-2012007322

PATIENT
  Sex: Female

DRUGS (2)
  1. AZITHROMYCIN [Concomitant]
     Indication: BRONCHITIS
     Dosage: UNK
     Dates: start: 20071216, end: 20081220
  2. CHANTIX [Suspect]
     Indication: SMOKING CESSATION THERAPY
     Dosage: 1 MG, UNK
     Dates: start: 20071114, end: 20080109

REACTIONS (5)
  - DEPRESSION [None]
  - ANXIETY [None]
  - EMOTIONAL DISTRESS [None]
  - PARANOIA [None]
  - MENTAL DISORDER [None]
